FAERS Safety Report 7296796-4 (Version None)
Quarter: 2011Q1

REPORT INFORMATION
  Report Type: 
  Country: None (occurrence: None)
  Receive Date: 20110216
  Receipt Date: 20110210
  Transmission Date: 20110831
  Serious: Yes (Other)
  Sender: FDA-Public Use
  Company Number: B0699899A

PATIENT
  Age: 81 Year
  Sex: Male

DRUGS (1)
  1. VALTREX [Suspect]
     Route: 048

REACTIONS (3)
  - GAIT DISTURBANCE [None]
  - ENCEPHALOPATHY [None]
  - ABNORMAL BEHAVIOUR [None]
